FAERS Safety Report 11605125 (Version 2)
Quarter: 2015Q4

REPORT INFORMATION
  Report Type: Spontaneous
  Country: US (occurrence: US)
  Receive Date: 20151007
  Receipt Date: 20151216
  Transmission Date: 20160304
  Serious: No
  Sender: FDA-Public Use
  Company Number: US-PFIZER INC-2015319088

PATIENT
  Age: 58 Year
  Sex: Female

DRUGS (1)
  1. SUTENT [Suspect]
     Active Substance: SUNITINIB MALATE
     Indication: SOFT TISSUE SARCOMA
     Dosage: 50 MG, CYCLIC (1X/DAY, 4 WEEKS ON THEN 2 WEEKS OFF)
     Route: 048

REACTIONS (7)
  - Soft tissue sarcoma [Unknown]
  - Furuncle [Unknown]
  - Pain [Unknown]
  - Diarrhoea [Unknown]
  - Depressed mood [Unknown]
  - Disease progression [Unknown]
  - Product use issue [Unknown]
